FAERS Safety Report 7843317-0 (Version None)
Quarter: 2011Q4

REPORT INFORMATION
  Report Type: 
  Country: None (occurrence: None)
  Receive Date: 20111025
  Receipt Date: 20111020
  Transmission Date: 20120403
  Serious: Yes (Hospitalization)
  Sender: FDA-Public Use
  Company Number: DE-ROCHE-597385

PATIENT
  Age: 66 Year
  Weight: 84 kg

DRUGS (5)
  1. METHIMAZOLE [Concomitant]
     Dosage: DOSAGE REGIMEN : 1 DF/D
  2. XELODA [Suspect]
     Indication: COLORECTAL CANCER
     Route: 048
     Dates: start: 20080717, end: 20090727
  3. PANTOPRAZOLE [Concomitant]
     Dosage: DOSAGE FORM : 1 DF/D
  4. SELENASE [Concomitant]
  5. XELODA [Suspect]
     Route: 048
     Dates: start: 20090727, end: 20091130

REACTIONS (7)
  - PYREXIA [None]
  - MUCOSAL INFLAMMATION [None]
  - DIARRHOEA [None]
  - ABDOMINAL PAIN [None]
  - ACUTE CORONARY SYNDROME [None]
  - VOMITING [None]
  - CHILLS [None]
